FAERS Safety Report 17892698 (Version 1)
Quarter: 2020Q2

REPORT INFORMATION
  Report Type: Other
  Country: IL (occurrence: IL)
  Receive Date: 20200613
  Receipt Date: 20200613
  Transmission Date: 20200714
  Serious: Yes (Death)
  Sender: FDA-Public Use
  Company Number: IL-NUVO PHARMACEUTICALS INC-2085762

PATIENT
  Age: 54 Year
  Sex: Male

DRUGS (3)
  1. INSULIN INFUSION [Concomitant]
     Route: 065
  2. SODIUM POLYSTYRENE SULFONATE. [Suspect]
     Active Substance: SODIUM POLYSTYRENE SULFONATE
     Indication: HYPERKALAEMIA
     Route: 045
  3. BETA AGONISTS [Concomitant]
     Route: 065

REACTIONS (1)
  - Bezoar [Fatal]
